FAERS Safety Report 4779999-X (Version None)
Quarter: 2005Q3

REPORT INFORMATION
  Report Type: 
  Country: None (occurrence: None)
  Receive Date: 20050914
  Receipt Date: 20050512
  Transmission Date: 20060218
  Serious: Yes (Death)
  Sender: FDA-Public Use
  Company Number: 163-20785-05050232

PATIENT
  Age: 59 Year
  Sex: Female

DRUGS (8)
  1. THALOMID [Suspect]
     Indication: MULTIPLE MYELOMA
     Dosage: ORAL
     Route: 048
     Dates: start: 20040801, end: 20040901
  2. DEXAMETHASONE [Concomitant]
  3. MS CONTIN [Concomitant]
  4. NEPHROCAPS (NEPHROCAPS) [Concomitant]
  5. ROCALTROL [Concomitant]
  6. LOVASTATIN [Concomitant]
  7. OMEPRAZOLE [Concomitant]
  8. ESTRADIOL [Concomitant]

REACTIONS (2)
  - DEATH [None]
  - DISEASE PROGRESSION [None]
